FAERS Safety Report 8544437-8 (Version None)
Quarter: 2012Q3

REPORT INFORMATION
  Report Type: 
  Country: None (occurrence: None)
  Receive Date: 20120727
  Receipt Date: 20120716
  Transmission Date: 20120928
  Serious: Yes (Hospitalization, Other)
  Sender: FDA-Public Use
  Company Number: US-BAYER-2012-072279

PATIENT
  Age: 79 Year
  Sex: Female
  Weight: 158 kg

DRUGS (10)
  1. CLOPIDOGREL [Concomitant]
     Dosage: DAILY DOSE 75 MG
     Route: 048
  2. LEVOTHYROXINE SODIUM [Concomitant]
     Dosage: 25 MG, UNK
  3. EZETIMIBE/SAMVASTATIN [Concomitant]
     Dosage: DAILY DOSE 10 MG
  4. LISINOPRIL [Concomitant]
     Dosage: DAILY DOSE 20 MG
  5. NIFEDIPINE [Suspect]
     Indication: MYOCARDIAL INFARCTION
     Dosage: DAILY DOSE 90 MG
     Route: 048
     Dates: start: 19950101
  6. PROCARDIA XL [Suspect]
     Indication: MYOCARDIAL INFARCTION
     Dosage: 90 MG, UNK
     Route: 048
     Dates: end: 19950101
  7. METOPROLOL [Concomitant]
     Indication: HYPERTENSION
     Dosage: 100 MG, UNK
  8. HYDROCHLOROTHIAZIDE [Concomitant]
     Dosage: 25 MG, TABLET
     Route: 048
  9. CLONIDINE [Concomitant]
     Dosage: 1 MG, UNK
  10. EZETIMIBE/SAMVASTATIN [Concomitant]
     Dosage: DAILY DOSE 40 MG

REACTIONS (5)
  - BLOOD COUNT ABNORMAL [None]
  - IMPAIRED WORK ABILITY [None]
  - HYPERTENSION [None]
  - ADHESION [None]
  - INTRA-ABDOMINAL HAEMORRHAGE [None]
